FAERS Safety Report 4406811-0 (Version None)
Quarter: 2004Q3

REPORT INFORMATION
  Report Type: 
  Country: None (occurrence: None)
  Receive Date: 20040715
  Receipt Date: 20040702
  Transmission Date: 20050211
  Serious: Yes (Hospitalization)
  Sender: FDA-Public Use
  Company Number: TR-JNJFOC-20040602393

PATIENT
  Age: 48 Year
  Sex: Male
  Weight: 62 kg

DRUGS (6)
  1. REMICADE [Suspect]
     Indication: RHEUMATOID ARTHRITIS
     Dosage: 15 MG, 1 IN 1 WEEK, INTRAVENOUS
     Route: 042
     Dates: start: 19970101, end: 20010101
  2. REMICADE [Suspect]
     Indication: RHEUMATOID ARTHRITIS
     Dosage: 15 MG, 1 IN 1 WEEK, INTRAVENOUS
     Route: 042
     Dates: start: 20040301
  3. METHOTREXATE [Concomitant]
  4. QUENCYL (ALL OTHER THERAPEUTIC PRODUCTS) [Concomitant]
  5. PREDNISOLONE [Concomitant]
  6. INDOMETHACIN [Concomitant]

REACTIONS (5)
  - PAIN [None]
  - PLEURAL EFFUSION [None]
  - PULMONARY TUBERCULOSIS [None]
  - TUBERCULOUS PLEURISY [None]
  - WEIGHT DECREASED [None]
